FAERS Safety Report 19584996 (Version 3)
Quarter: 2021Q3

REPORT INFORMATION
  Report Type: Spontaneous
  Country: US (occurrence: US)
  Receive Date: 20210720
  Receipt Date: 20210830
  Transmission Date: 20211014
  Serious: No
  Sender: FDA-Public Use
  Company Number: US-ASCEND THERAPEUTICS US, LLC-2114048

PATIENT
  Age: 53 Year
  Sex: Female
  Weight: 56.36 kg

DRUGS (4)
  1. PROGESTERONE. [Concomitant]
     Active Substance: PROGESTERONE
     Route: 048
     Dates: start: 20210629
  2. ESTROGEL [Suspect]
     Active Substance: ESTRADIOL
  3. ESTROGEL [Suspect]
     Active Substance: ESTRADIOL
     Route: 061
     Dates: start: 20210629
  4. ESTROGEL [Suspect]
     Active Substance: ESTRADIOL
     Indication: HOT FLUSH
     Route: 061
     Dates: start: 20210629

REACTIONS (2)
  - Condition aggravated [Recovered/Resolved]
  - Product use issue [None]

NARRATIVE: CASE EVENT DATE: 20210629
